FAERS Safety Report 12863182 (Version 1)
Quarter: 2016Q4

REPORT INFORMATION
  Report Type: Spontaneous
  Country: GB (occurrence: GB)
  Receive Date: 20161019
  Receipt Date: 20161019
  Transmission Date: 20170207
  Serious: Yes (Life-Threatening, Hospitalization, Disabling, Other)
  Sender: FDA-Public Use
  Company Number: GB-TEVA-702740ACC

PATIENT
  Age: 87 Year
  Sex: Male

DRUGS (9)
  1. ALFUZOSIN [Concomitant]
     Active Substance: ALFUZOSIN
  2. WARFARIN [Suspect]
     Active Substance: WARFARIN
     Indication: ATRIAL FIBRILLATION
     Dosage: 5MG MONDAY AND FRIDAY, 4MG ALL OTHER DAYS.
     Route: 048
     Dates: end: 20160718
  3. ISOSORBIDE MONONITRATE. [Concomitant]
     Active Substance: ISOSORBIDE MONONITRATE
  4. WARFARIN [Suspect]
     Active Substance: WARFARIN
     Dosage: 5MG MONDAY AND FRIDAY, 4MG ALL OTHER DAYS
     Route: 048
     Dates: end: 20160718
  5. GABAPENTIN. [Concomitant]
     Active Substance: GABAPENTIN
  6. KETOVITE [Concomitant]
     Active Substance: VITAMINS
  7. OXYBUTYNIN [Concomitant]
     Active Substance: OXYBUTYNIN
  8. OMEPRAZOLE. [Concomitant]
     Active Substance: OMEPRAZOLE
  9. HYDROXOCOBALAMIN [Concomitant]
     Active Substance: HYDROXOCOBALAMIN

REACTIONS (4)
  - International normalised ratio increased [Unknown]
  - Cognitive disorder [Unknown]
  - Subdural haematoma [Recovered/Resolved with Sequelae]
  - Mobility decreased [Unknown]

NARRATIVE: CASE EVENT DATE: 20160718
